FAERS Safety Report 5354571-1 (Version None)
Quarter: 2007Q2

REPORT INFORMATION
  Report Type: 
  Country: None (occurrence: None)
  Receive Date: 20070612
  Receipt Date: 20070601
  Transmission Date: 20071010
  Serious: Yes (Death)
  Sender: FDA-Public Use
  Company Number: US-GENENTECH-242561

PATIENT
  Sex: Female

DRUGS (2)
  1. BEVACIZUMAB [Suspect]
     Indication: SARCOMA
     Dosage: 15 MG/KG, Q3W
  2. DOXORUBICIN HCL [Suspect]
     Indication: SARCOMA
     Dosage: 75 MG/M2, Q3W
     Route: 042

REACTIONS (1)
  - PNEUMOTHORAX [None]
